FAERS Safety Report 8393435-6 (Version None)
Quarter: 2012Q2

REPORT INFORMATION
  Report Type: 
  Country: None (occurrence: None)
  Receive Date: 20120529
  Receipt Date: 20120522
  Transmission Date: 20120825
  Serious: Yes (Hospitalization)
  Sender: FDA-Public Use
  Company Number: US-ABBOTT-11P-163-0882734-00

PATIENT
  Sex: Male
  Weight: 60.382 kg

DRUGS (7)
  1. HUMIRA [Suspect]
     Dosage: Q 2 WEEKS
  2. VICODIN [Concomitant]
     Indication: INSOMNIA
  3. MERCAPTOPURINE [Concomitant]
     Indication: CROHN'S DISEASE
     Dosage: DAILY
  4. HUMIRA [Suspect]
     Indication: CROHN'S DISEASE
     Dosage: INDUCTION DOSE
     Dates: start: 20111101, end: 20111101
  5. PREDNISONE [Concomitant]
     Indication: INFLAMMATION
  6. VICODIN [Concomitant]
     Indication: PAIN
  7. PREDNISONE [Concomitant]
     Indication: CROHN'S DISEASE
     Dosage: THREE DAILY

REACTIONS (7)
  - VESICAL FISTULA [None]
  - ENTERITIS [None]
  - WOUND DEHISCENCE [None]
  - COLITIS [None]
  - CYSTITIS [None]
  - CROHN'S DISEASE [None]
  - DYSURIA [None]
